FAERS Safety Report 12745941 (Version 1)
Quarter: 2016Q3

REPORT INFORMATION
  Report Type: Spontaneous
  Country: US (occurrence: US)
  Receive Date: 20160915
  Receipt Date: 20160915
  Transmission Date: 20161109
  Serious: No
  Sender: FDA-Public Use
  Company Number: US-BAYER-2016-174011

PATIENT
  Age: 77 Year
  Sex: Female
  Weight: 63.49 kg

DRUGS (2)
  1. MIRALAX [Suspect]
     Active Substance: POLYETHYLENE GLYCOL 3350
     Indication: COLONOSCOPY
     Dosage: UNK, UNK (1/2 BOTTLE OF MIRALAX MIXED WITH 32OZ OF GATORADE)
     Route: 048
     Dates: end: 20160905
  2. DULCOLAX (DOCUSATE SODIUM) [Concomitant]
     Active Substance: DOCUSATE SODIUM
     Indication: COLONOSCOPY
     Dosage: 2 OR 4 DF

REACTIONS (3)
  - Off label use [Unknown]
  - Product preparation error [Unknown]
  - Drug ineffective for unapproved indication [None]

NARRATIVE: CASE EVENT DATE: 20160905
